FAERS Safety Report 8113844-X (Version None)
Quarter: 2012Q1

REPORT INFORMATION
  Report Type: 
  Country: None (occurrence: None)
  Receive Date: 20120203
  Receipt Date: 20120201
  Transmission Date: 20120608
  Serious: Yes (Hospitalization)
  Sender: FDA-Public Use
  Company Number: PHHO2011US03621

PATIENT
  Sex: Male
  Weight: 108 kg

DRUGS (5)
  1. NAPROXEN [Suspect]
     Indication: OSTEOARTHRITIS
     Dosage: DOUBLE BLIND
  2. OMEPRAZOLE [Suspect]
     Indication: OSTEOARTHRITIS
     Dosage: DOUBLE BLIND
  3. ILARIS [Suspect]
     Indication: OSTEOARTHRITIS
     Dosage: DOUBLE BLIND
  4. METHOTREXATE [Concomitant]
     Indication: RHEUMATOID ARTHRITIS
  5. BLINDED NO TREATMENT RECEIVED [Suspect]
     Indication: OSTEOARTHRITIS
     Dosage: DOUBLE BLIND

REACTIONS (2)
  - CONCOMITANT DISEASE PROGRESSION [None]
  - EPISTAXIS [None]
